FAERS Safety Report 10954408 (Version 1)
Quarter: 2015Q1

REPORT INFORMATION
  Report Type: Spontaneous
  Country: US (occurrence: US)
  Receive Date: 20150325
  Receipt Date: 20150325
  Transmission Date: 20150721
  Serious: No
  Sender: FDA-Public Use
  Company Number: US-SHIRE-US201502615

PATIENT
  Age: 3 Year
  Sex: Male

DRUGS (1)
  1. PENTASA [Suspect]
     Active Substance: MESALAMINE
     Indication: GASTROINTESTINAL DISORDER
     Dosage: UNK, UNKNOWN
     Route: 048

REACTIONS (2)
  - Drug administered to patient of inappropriate age [Unknown]
  - No adverse event [Unknown]
